FAERS Safety Report 5213081-2 (Version None)
Quarter: 2007Q1

REPORT INFORMATION
  Report Type: 
  Country: None (occurrence: None)
  Receive Date: 20070119
  Receipt Date: 20070109
  Transmission Date: 20070707
  Serious: Yes (Hospitalization)
  Sender: FDA-Public Use
  Company Number: FRWYE080209JAN07

PATIENT
  Sex: Male

DRUGS (8)
  1. ENBREL [Suspect]
     Indication: PSORIATIC ARTHROPATHY
     Route: 058
     Dates: start: 20030429, end: 20061128
  2. METHOTREXATE [Suspect]
     Indication: PSORIATIC ARTHROPATHY
     Dosage: UNKNOWN
     Route: 048
     Dates: start: 20000615, end: 20061128
  3. CORTANCYL [Suspect]
     Route: 048
  4. VITAMIN D3 [Concomitant]
     Dosage: UNKNOWN
     Route: 048
  5. SPECIAFOLDINE [Concomitant]
     Dosage: 5 TABLETS TOTAL WEEKLY
     Route: 048
  6. LANZOR [Concomitant]
     Dosage: UNKNOWN
     Route: 048
  7. CALCIUM CARBONATE/CITRIC ACID [Concomitant]
     Dosage: UNKNOWN
     Route: 048
  8. TRAMADOL HCL [Concomitant]
     Dosage: UNKNOWN
     Route: 065
     Dates: start: 20000101, end: 20061205

REACTIONS (5)
  - ARTHRALGIA [None]
  - ERYSIPELAS [None]
  - LYMPHOCYTE COUNT DECREASED [None]
  - PAIN IN EXTREMITY [None]
  - VASCULAR PURPURA [None]
